FAERS Safety Report 25563023 (Version 2)
Quarter: 2025Q3

REPORT INFORMATION
  Report Type: Report from Study
  Country: US (occurrence: US)
  Receive Date: 20250716
  Receipt Date: 20250829
  Transmission Date: 20251021
  Serious: Yes (Other)
  Sender: JOHNSON AND JOHNSON
  Company Number: US-JNJFOC-20250714547

PATIENT
  Age: 3 Decade
  Sex: Male

DRUGS (1)
  1. SPRAVATO [Suspect]
     Active Substance: ESKETAMINE
     Indication: Product used for unknown indication
     Route: 045
     Dates: start: 2025, end: 2025

REACTIONS (4)
  - Suicidal ideation [Not Recovered/Not Resolved]
  - Treatment noncompliance [Unknown]
  - Depression [Not Recovered/Not Resolved]
  - Attention deficit hyperactivity disorder [Not Recovered/Not Resolved]

NARRATIVE: CASE EVENT DATE: 20250101
